FAERS Safety Report 13664988 (Version 34)
Quarter: 2019Q4

REPORT INFORMATION
  Report Type: Report from Study
  Country: DE (occurrence: DE)
  Receive Date: 20170619
  Receipt Date: 20191223
  Transmission Date: 20200122
  Serious: Yes (Hospitalization, Other)
  Sender: FDA-Public Use
  Company Number: DE-BRISTOL-MYERS SQUIBB COMPANY-BMS-2017-052959

PATIENT
  Age: 80 Year
  Sex: Female

DRUGS (6)
  1. PARACETAMOL [Concomitant]
     Active Substance: ACETAMINOPHEN
     Indication: PRODUCT USED FOR UNKNOWN INDICATION
     Route: 065
  2. TRAMADOL HYDROCHLORIDE. [Concomitant]
     Active Substance: TRAMADOL HYDROCHLORIDE
     Indication: PRODUCT USED FOR UNKNOWN INDICATION
     Route: 065
  3. MOMETASONE FUROATE. [Concomitant]
     Active Substance: MOMETASONE FUROATE
     Indication: PRODUCT USED FOR UNKNOWN INDICATION
     Dosage: UNK
     Route: 065
  4. NIVOLUMAB [Suspect]
     Active Substance: NIVOLUMAB
     Indication: MALIGNANT MELANOMA
     Dosage: 240 MILLIGRAM, Q2WK
     Route: 042
     Dates: start: 20170505, end: 20180831
  5. ZOPICLONE [Concomitant]
     Active Substance: ZOPICLONE
     Indication: PRODUCT USED FOR UNKNOWN INDICATION
     Dosage: UNK
     Route: 065
  6. TINZAPARIN SODIUM [Concomitant]
     Active Substance: TINZAPARIN SODIUM
     Indication: PRODUCT USED FOR UNKNOWN INDICATION
     Route: 065

REACTIONS (27)
  - Hyperthyroidism [Recovered/Resolved]
  - Insomnia [Recovered/Resolved]
  - Dry mouth [Recovering/Resolving]
  - Dizziness [Unknown]
  - Dry eye [Recovered/Resolved]
  - Infection [Recovered/Resolved]
  - Autoimmune hypothyroidism [Recovered/Resolved]
  - Lichen planus [Not Recovered/Not Resolved]
  - Pulmonary embolism [Unknown]
  - General physical health deterioration [Unknown]
  - Rash maculo-papular [Recovered/Resolved]
  - Weight decreased [Recovering/Resolving]
  - Influenza like illness [Recovered/Resolved]
  - Hypomagnesaemia [Recovered/Resolved]
  - Vision blurred [Unknown]
  - Cough [Recovered/Resolved]
  - Prurigo [Unknown]
  - Bone pain [Recovering/Resolving]
  - Decreased appetite [Unknown]
  - Dyspnoea [Recovered/Resolved]
  - Autoimmune hepatitis [Recovered/Resolved]
  - Pruritus [Recovered/Resolved]
  - Hypocalcaemia [Recovering/Resolving]
  - Oedema peripheral [Recovered/Resolved]
  - Bronchitis [Recovered/Resolved]
  - Fatigue [Not Recovered/Not Resolved]
  - Headache [Recovering/Resolving]

NARRATIVE: CASE EVENT DATE: 20170506
